FAERS Safety Report 5612111-3 (Version None)
Quarter: 2008Q1

REPORT INFORMATION
  Report Type: 
  Country: None (occurrence: None)
  Receive Date: 20080204
  Receipt Date: 20080130
  Transmission Date: 20080703
  Serious: Yes (Death)
  Sender: FDA-Public Use
  Company Number: DE-BRISTOL-MYERS SQUIBB COMPANY-14060107

PATIENT

DRUGS (2)
  1. PACLITAXEL [Suspect]
     Indication: METASTATIC NEOPLASM
     Route: 042
  2. CARBOPLATIN [Suspect]
     Indication: METASTATIC NEOPLASM
     Dosage: DOSE UNIT MG/ML/MIN

REACTIONS (1)
  - DEATH [None]
